FAERS Safety Report 8058301-4 (Version None)
Quarter: 2012Q1

REPORT INFORMATION
  Report Type: 
  Country: None (occurrence: None)
  Receive Date: 20120120
  Receipt Date: 20120112
  Transmission Date: 20120608
  Serious: Yes (Other)
  Sender: FDA-Public Use
  Company Number: US-US-EMD SERONO, INC.-7086367

PATIENT
  Sex: Female
  Weight: 59 kg

DRUGS (1)
  1. REBIF [Suspect]
     Indication: MULTIPLE SCLEROSIS
     Route: 058
     Dates: start: 20090602

REACTIONS (7)
  - SINUSITIS [None]
  - GLOSSODYNIA [None]
  - INJECTION SITE PAIN [None]
  - INJECTION SITE DISCOLOURATION [None]
  - LHERMITTE'S SIGN [None]
  - COELIAC DISEASE [None]
  - RASH [None]
